FAERS Safety Report 4708519-0 (Version None)
Quarter: 2005Q3

REPORT INFORMATION
  Report Type: 
  Country: None (occurrence: None)
  Receive Date: 20050707
  Receipt Date: 20050628
  Transmission Date: 20060218
  Serious: Yes (Other)
  Sender: FDA-Public Use
  Company Number: US-GLAXOSMITHKLINE-A0564639A

PATIENT
  Sex: Male
  Weight: 3.7 kg

DRUGS (3)
  1. IMITREX [Suspect]
     Indication: MIGRAINE
  2. IMITREX [Suspect]
  3. TYLENOL [Concomitant]

REACTIONS (2)
  - DRUG EXPOSURE DURING PREGNANCY [None]
  - HYDROCEPHALUS [None]
